FAERS Safety Report 4806846-X (Version None)
Quarter: 2005Q4

REPORT INFORMATION
  Report Type: 
  Country: None (occurrence: None)
  Receive Date: 20051024
  Receipt Date: 20051012
  Transmission Date: 20060501
  Serious: Yes (Other)
  Sender: FDA-Public Use
  Company Number: JP-SOLVAY-00305003248

PATIENT
  Age: 81 Year
  Sex: Female

DRUGS (9)
  1. LUDIOMIL [Concomitant]
     Indication: DEPRESSIVE SYMPTOM
     Dosage: DAILY DOSE: 10 MILLIGRAM(S)
     Route: 048
     Dates: start: 20000101, end: 20051006
  2. LUVOX [Suspect]
     Indication: DEPRESSIVE SYMPTOM
     Dosage: DAILY DOSE: 25 MILLIGRAM(S)
     Route: 048
     Dates: start: 20051007
  3. VOLTAREN [Concomitant]
     Indication: HEADACHE
     Dosage: DAILY DOSE: 75 MILLIGRAM(S)
     Route: 048
     Dates: start: 20000101, end: 20051010
  4. VOLTAREN [Concomitant]
     Dosage: DAILY DOSE: 50 MILLIGRAM(S)
     Route: 048
     Dates: start: 20051011
  5. HALCION [Interacting]
     Indication: ILL-DEFINED DISORDER
     Dosage: DAILY DOSE: .25 MILLIGRAM(S)
     Route: 048
     Dates: start: 19850101
  6. SYMMETREL [Concomitant]
     Indication: ILL-DEFINED DISORDER
     Dosage: DAILY DOSE: 150 MILLIGRAM(S)
     Route: 048
     Dates: start: 20000101
  7. ADALAT [Concomitant]
     Indication: HYPERTENSION
     Dosage: DAILY DOSE: 20 MILLIGRAM(S)
     Route: 048
     Dates: start: 20041001
  8. MICARDIS [Concomitant]
     Indication: HYPERTENSION
     Dosage: DAILY DOSE: 20 MILLIGRAM(S)
     Route: 048
     Dates: start: 20041001
  9. NATRIX [Concomitant]
     Indication: HYPERTENSION
     Dosage: DAILY DOSE: 1 MILLIGRAM(S)
     Route: 048
     Dates: start: 20041001

REACTIONS (3)
  - DRUG INTERACTION [None]
  - HEADACHE [None]
  - LOSS OF CONSCIOUSNESS [None]
